FAERS Safety Report 17367188 (Version 2)
Quarter: 2020Q1

REPORT INFORMATION
  Report Type: Spontaneous
  Country: NO (occurrence: NO)
  Receive Date: 20200204
  Receipt Date: 20200312
  Transmission Date: 20200409
  Serious: Yes (Life-Threatening, Hospitalization, Other)
  Sender: FDA-Public Use
  Company Number: NO-PFIZER INC-2020047323

PATIENT
  Age: 38 Year
  Sex: Female

DRUGS (4)
  1. NEURONTIN [Suspect]
     Active Substance: GABAPENTIN
     Indication: RESTLESS LEGS SYNDROME
     Dosage: 300 MG + 300 MG + 600 MG DAILY
     Route: 048
  2. NEURONTIN [Suspect]
     Active Substance: GABAPENTIN
     Indication: BACK PAIN
  3. CIPRAMIL [CITALOPRAM HYDROBROMIDE] [Concomitant]
     Active Substance: CITALOPRAM HYDROBROMIDE
     Indication: DEPRESSION
     Dosage: 40 MG, 1X/DAY
     Dates: end: 202001
  4. NEURONTIN [Suspect]
     Active Substance: GABAPENTIN
     Indication: MUSCLE SPASMS
     Dosage: 900 MG, 3X/DAY FROM SOME TIME BEFORE CHRISTMAS
     Route: 048
     Dates: start: 2019

REACTIONS (12)
  - Hypoglycaemic coma [Recovered/Resolved]
  - Gastritis [Unknown]
  - Liver function test increased [Unknown]
  - Munchausen^s syndrome [Unknown]
  - Chest pain [Unknown]
  - Speech disorder [Unknown]
  - International normalised ratio increased [Unknown]
  - Hypoglycaemia [Recovered/Resolved]
  - Mental disorder [Unknown]
  - Nephrolithiasis [Unknown]
  - Dysarthria [Unknown]
  - Abdominal pain [Unknown]

NARRATIVE: CASE EVENT DATE: 2017
